FAERS Safety Report 6311416-0 (Version None)
Quarter: 2009Q3

REPORT INFORMATION
  Report Type: 
  Country: None (occurrence: None)
  Receive Date: 20090817
  Receipt Date: 20090805
  Transmission Date: 20100115
  Serious: Yes (Other)
  Sender: FDA-Public Use
  Company Number: JP-PFIZER INC-2009249190

PATIENT

DRUGS (3)
  1. SOLU-MEDROL [Suspect]
     Route: 042
  2. FUNGIZONE [Concomitant]
     Route: 048
  3. ISODINE [Concomitant]
     Route: 048

REACTIONS (1)
  - OESOPHAGEAL CANDIDIASIS [None]
